FAERS Safety Report 4692871-9 (Version None)
Quarter: 2005Q2

REPORT INFORMATION
  Report Type: 
  Country: None (occurrence: None)
  Receive Date: 20050617
  Receipt Date: 20050607
  Transmission Date: 20051028
  Serious: Yes (Hospitalization)
  Sender: FDA-Public Use
  Company Number: FR-BRISTOL-MYERS SQUIBB COMPANY-12998050

PATIENT
  Age: 89 Year
  Sex: Male

DRUGS (4)
  1. AVAPRO [Suspect]
     Route: 048
     Dates: start: 20050115, end: 20050322
  2. HYPERIUM [Suspect]
     Route: 048
     Dates: end: 20050322
  3. LOXEN LP [Concomitant]
  4. INSULIN [Concomitant]
     Indication: DIABETES MELLITUS NON-INSULIN-DEPENDENT

REACTIONS (2)
  - CHOLESTASIS [None]
  - JAUNDICE [None]
